FAERS Safety Report 9741432 (Version 2)
Quarter: 2014Q1

REPORT INFORMATION
  Report Type: Spontaneous
  Country: BR (occurrence: BR)
  Receive Date: 20131209
  Receipt Date: 20140207
  Transmission Date: 20141002
  Serious: Yes (Other)
  Sender: FDA-Public Use
  Company Number: PHHY2013BR142875

PATIENT
  Sex: Female
  Weight: 57 kg

DRUGS (4)
  1. FORASEQ [Suspect]
     Indication: ASTHMA
     Dosage: 1 DF, DAILY (1 OR 2 TIMES A DAY, VIA INHALATION)
     Route: 055
  2. FORASEQ [Suspect]
     Dosage: 1 DF, DAILY (1 OR 2 TIMES A DAY, VIA INHALATION)
     Route: 055
  3. ENOXAPARIN SODIUM [Concomitant]
     Indication: COAGULOPATHY
     Dosage: 1 DF, DAILY
     Route: 058
  4. MULTI-VIT [Concomitant]
     Dosage: 1 DF, DAILY

REACTIONS (4)
  - Asthma [Unknown]
  - Thyroid function test abnormal [Unknown]
  - Device malfunction [Unknown]
  - Maternal exposure during pregnancy [Unknown]
